FAERS Safety Report 16565602 (Version 1)
Quarter: 2019Q3

REPORT INFORMATION
  Report Type: Spontaneous
  Country: IT (occurrence: IT)
  Receive Date: 20190712
  Receipt Date: 20190712
  Transmission Date: 20191004
  Serious: Yes (Other)
  Sender: FDA-Public Use
  Company Number: IT-AMGEN-ITASP2019091456

PATIENT
  Age: 66 Year
  Sex: Male

DRUGS (1)
  1. IVABRADINE [Suspect]
     Active Substance: IVABRADINE
     Indication: ANGINA PECTORIS
     Dosage: 10 MILLIGRAM, QD
     Route: 048
     Dates: start: 20190401, end: 20190411

REACTIONS (2)
  - Oropharyngeal pain [Recovering/Resolving]
  - Laryngeal oedema [Recovering/Resolving]

NARRATIVE: CASE EVENT DATE: 20190411
